FAERS Safety Report 12631939 (Version 2)
Quarter: 2016Q3

REPORT INFORMATION
  Report Type: Spontaneous
  Country: US (occurrence: US)
  Receive Date: 20160808
  Receipt Date: 20160808
  Transmission Date: 20161109
  Serious: No
  Sender: FDA-Public Use
  Company Number: US-BEH-2016061467

PATIENT
  Sex: Female
  Weight: 108 kg

DRUGS (31)
  1. CYANOCOBALAMIN. [Concomitant]
     Active Substance: CYANOCOBALAMIN
  2. CYMBALTA [Concomitant]
     Active Substance: DULOXETINE HYDROCHLORIDE
  3. COUMADIN [Concomitant]
     Active Substance: WARFARIN SODIUM
  4. HIZENTRA [Suspect]
     Active Substance: HUMAN IMMUNOGLOBULIN G
     Indication: IMMUNODEFICIENCY COMMON VARIABLE
     Route: 058
  5. DOXYCYCLINE. [Concomitant]
     Active Substance: DOXYCYCLINE
  6. LIOTHYRONINE [Concomitant]
     Active Substance: LIOTHYRONINE
  7. MAGNESIUM CITRATE. [Concomitant]
     Active Substance: MAGNESIUM CITRATE
  8. HIZENTRA [Suspect]
     Active Substance: HUMAN IMMUNOGLOBULIN G
     Route: 058
  9. KEFLEX [Concomitant]
     Active Substance: CEPHALEXIN
  10. OXYCODONE [Concomitant]
     Active Substance: OXYCODONE
  11. DIFLUCAN [Concomitant]
     Active Substance: FLUCONAZOLE
  12. LEVEMIR [Concomitant]
     Active Substance: INSULIN DETEMIR
  13. ARIMIDEX [Concomitant]
     Active Substance: ANASTROZOLE
  14. HIZENTRA [Suspect]
     Active Substance: HUMAN IMMUNOGLOBULIN G
     Route: 058
  15. PROBIOTIC [Concomitant]
     Active Substance: PROBIOTICS NOS
  16. COLCHICINE. [Concomitant]
     Active Substance: COLCHICINE
  17. ONE-A-DAY WOMEN^S [Concomitant]
     Active Substance: VITAMINS
  18. NOVOLOG [Concomitant]
     Active Substance: INSULIN ASPART
  19. ATENOLOL. [Concomitant]
     Active Substance: ATENOLOL
  20. VITAMIN D [Concomitant]
     Active Substance: CHOLECALCIFEROL
  21. CELEXA [Concomitant]
     Active Substance: CITALOPRAM HYDROBROMIDE
  22. PROTONIX [Concomitant]
     Active Substance: PANTOPRAZOLE SODIUM
  23. SPIRONOLACTONE. [Concomitant]
     Active Substance: SPIRONOLACTONE
  24. GUAIFENESIN. [Concomitant]
     Active Substance: GUAIFENESIN
  25. ALBUTEROL. [Concomitant]
     Active Substance: ALBUTEROL
  26. PRILOSEC [Concomitant]
     Active Substance: OMEPRAZOLE MAGNESIUM
  27. SYNTHROID [Concomitant]
     Active Substance: LEVOTHYROXINE SODIUM
  28. ALLOPURINOL. [Concomitant]
     Active Substance: ALLOPURINOL
  29. CYCLOBENZAPRINE [Concomitant]
     Active Substance: CYCLOBENZAPRINE
  30. HYDROCODONE-ACETAMINOPHEN [Concomitant]
     Active Substance: ACETAMINOPHEN\HYDROCODONE
  31. PREDNISONE. [Concomitant]
     Active Substance: PREDNISONE

REACTIONS (2)
  - Nasopharyngitis [Unknown]
  - Sinusitis [Unknown]
